FAERS Safety Report 22639753 (Version 1)
Quarter: 2023Q2

REPORT INFORMATION
  Report Type: Spontaneous
  Country: GB (occurrence: GB)
  Receive Date: 20230626
  Receipt Date: 20230626
  Transmission Date: 20230721
  Serious: Yes (Other)
  Sender: FDA-Public Use
  Company Number: None

PATIENT

DRUGS (7)
  1. ACETAMINOPHEN [Suspect]
     Active Substance: ACETAMINOPHEN
     Indication: Product used for unknown indication
     Route: 048
  2. BETAMETHASONE VALERATE [Concomitant]
     Active Substance: BETAMETHASONE VALERATE
     Dosage: APPLY THINLY TO THE AFFECTED AREA(S) ONCE OR TW...
     Dates: start: 20230224, end: 20230324
  3. BUDESONIDE\FORMOTEROL [Concomitant]
     Active Substance: BUDESONIDE\FORMOTEROL
     Dosage: MAINTENENCE: 1 DOSE TWICE DAILY; RELIEVER: 1 PU...
     Dates: start: 20220622
  4. ESTRADIOL [Concomitant]
     Active Substance: ESTRADIOL
     Dates: start: 20230310
  5. PROGESTERONE [Concomitant]
     Active Substance: PROGESTERONE
     Dosage: NIGHT
     Dates: start: 20230310
  6. ALBUTEROL [Concomitant]
     Active Substance: ALBUTEROL
     Dosage: 2 DOSES
     Route: 055
     Dates: start: 20230509
  7. MINERAL OIL [Concomitant]
     Active Substance: MINERAL OIL
     Dosage: APPLY TO SKIN FREQUENTLY AND LIBERALLY, AS OFTE...
     Dates: start: 20230224, end: 20230324

REACTIONS (3)
  - Urticaria [Recovered/Resolved]
  - Pruritus [Recovered/Resolved]
  - Swelling face [Recovered/Resolved]
